FAERS Safety Report 6258158-8 (Version None)
Quarter: 2009Q2

REPORT INFORMATION
  Report Type: 
  Country: None (occurrence: None)
  Receive Date: 20090630
  Receipt Date: 20080805
  Transmission Date: 20091009
  Serious: Yes (Disabling)
  Sender: FDA-Public Use
  Company Number: M-05-043

PATIENT
  Age: 80 Year
  Sex: Male

DRUGS (6)
  1. AMIODARONE HCL [Suspect]
     Indication: ATRIAL FIBRILLATION
     Dosage: 200 MG, PO
     Route: 048
     Dates: start: 20040107, end: 20040212
  2. AMIODARONE HCL [Suspect]
     Indication: ATRIAL FIBRILLATION
     Dosage: 200 MG, BID, PO
     Route: 048
     Dates: start: 20031201, end: 20040106
  3. AMIODARONE HCL [Suspect]
     Indication: ARRHYTHMIA
     Dosage: 200 MG, TID, PO
     Route: 048
     Dates: start: 20031125, end: 20031201
  4. COUMADIN [Suspect]
     Dosage: QD, PO
     Route: 048
     Dates: start: 19990922
  5. ATENOLOL [Concomitant]
  6. UNSPECIFIED VITAMINS [Concomitant]

REACTIONS (5)
  - INTERNATIONAL NORMALISED RATIO INCREASED [None]
  - OPTIC NEUROPATHY [None]
  - POTENTIATING DRUG INTERACTION [None]
  - TREMOR [None]
  - VISUAL ACUITY REDUCED [None]
